FAERS Safety Report 7182350-1 (Version None)
Quarter: 2010Q4

REPORT INFORMATION
  Report Type: 
  Country: None (occurrence: None)
  Receive Date: 20101221
  Receipt Date: 20101211
  Transmission Date: 20110411
  Serious: Yes (Hospitalization, Other)
  Sender: FDA-Public Use
  Company Number: US-BRISTOL-MYERS SQUIBB COMPANY-15422512

PATIENT
  Sex: Male

DRUGS (1)
  1. COUMADIN [Suspect]
     Dosage: ALSO TAKEN AS 5MG TABS FORMULATION

REACTIONS (2)
  - GALLBLADDER OPERATION [None]
  - INTERNATIONAL NORMALISED RATIO ABNORMAL [None]
